FAERS Safety Report 21504684 (Version 1)
Quarter: 2022Q4

REPORT INFORMATION
  Report Type: Spontaneous
  Country: US (occurrence: US)
  Receive Date: 20221025
  Receipt Date: 20221025
  Transmission Date: 20230113
  Serious: No
  Sender: FDA-Public Use
  Company Number: US-MYLANLABS-2022M1095330

PATIENT
  Sex: Male
  Weight: 70.31 kg

DRUGS (2)
  1. WIXELA INHUB [Suspect]
     Active Substance: FLUTICASONE PROPIONATE\SALMETEROL XINAFOATE
     Indication: Dyspnoea
     Dosage: UNK, QD(250/50 MICROGRAM,2 PUFFS PER DAY)
     Route: 055
     Dates: start: 20220717
  2. WIXELA INHUB [Suspect]
     Active Substance: FLUTICASONE PROPIONATE\SALMETEROL XINAFOATE
     Dosage: UNK, QD(250/50 MICROGRAM,2 PUFFS PER DAY)
     Route: 055
     Dates: start: 20220811

REACTIONS (3)
  - Device breakage [Unknown]
  - Device malfunction [Unknown]
  - Inappropriate schedule of product administration [Unknown]
